FAERS Safety Report 18232751 (Version 1)
Quarter: 2020Q3

REPORT INFORMATION
  Report Type: Spontaneous
  Country: US (occurrence: US)
  Receive Date: 20200904
  Receipt Date: 20200904
  Transmission Date: 20201103
  Serious: Yes (Death)
  Sender: FDA-Public Use
  Company Number: None

PATIENT
  Age: 58 Year
  Sex: Male
  Weight: 157 kg

DRUGS (1)
  1. REMDESIVIR (EUA) (REMDESIVIR (EUA)) [Suspect]
     Active Substance: REMDESIVIR
     Indication: COVID-19
     Route: 042
     Dates: start: 20200707, end: 20200711

REACTIONS (5)
  - General physical health deterioration [None]
  - Hypotension [None]
  - Sinus tachycardia [None]
  - Pulmonary embolism [None]
  - Acute kidney injury [None]

NARRATIVE: CASE EVENT DATE: 20200711
